FAERS Safety Report 21151474 (Version 1)
Quarter: 2022Q3

REPORT INFORMATION
  Report Type: Spontaneous
  Country: CA (occurrence: CA)
  Receive Date: 20220730
  Receipt Date: 20220730
  Transmission Date: 20221026
  Serious: Yes (Other)
  Sender: FDA-Public Use
  Company Number: CA-JNJFOC-20220755628

PATIENT
  Age: 62 Year
  Sex: Female
  Weight: 63 kg

DRUGS (9)
  1. REMICADE [Suspect]
     Active Substance: INFLIXIMAB
     Indication: Ankylosing spondylitis
     Route: 041
  2. PAROXETINE [Concomitant]
     Active Substance: PAROXETINE
  3. QUETIAPINE [Concomitant]
     Active Substance: QUETIAPINE
     Indication: Memory impairment
  4. QUETIAPINE [Concomitant]
     Active Substance: QUETIAPINE
     Indication: Frontotemporal dementia
  5. QUETIAPINE [Concomitant]
     Active Substance: QUETIAPINE
     Indication: Cerebral atrophy
  6. RISPERIDONE [Concomitant]
     Active Substance: RISPERIDONE
     Indication: Cerebral atrophy
  7. RISPERIDONE [Concomitant]
     Active Substance: RISPERIDONE
     Indication: Frontotemporal dementia
  8. RISPERIDONE [Concomitant]
     Active Substance: RISPERIDONE
     Indication: Memory impairment
  9. TYLENOL EXTRA STRENGTH [Concomitant]
     Active Substance: ACETAMINOPHEN

REACTIONS (5)
  - Dementia [Unknown]
  - Restlessness [Unknown]
  - Confusional state [Unknown]
  - Off label use [Unknown]
  - Intentional product use issue [Unknown]
